FAERS Safety Report 7122357-3 (Version None)
Quarter: 2010Q4

REPORT INFORMATION
  Report Type: 
  Country: None (occurrence: None)
  Receive Date: 20101124
  Receipt Date: 20101115
  Transmission Date: 20110411
  Serious: Yes (Hospitalization)
  Sender: FDA-Public Use
  Company Number: PHHO2010US17364

PATIENT
  Sex: Male
  Weight: 151.93 kg

DRUGS (1)
  1. ACZ885 ACZ+ [Suspect]
     Indication: GOUT
     Route: 058

REACTIONS (1)
  - LOWER GASTROINTESTINAL HAEMORRHAGE [None]
